FAERS Safety Report 8897172 (Version 1)
Quarter: 2012Q4

REPORT INFORMATION
  Report Type: 
  Country: US (occurrence: US)
  Receive Date: 20121108
  Receipt Date: 20121108
  Transmission Date: 20130627
  Serious: No
  Sender: FDA-Public Use
  Company Number: US-AMGEN-USASP2012025646

PATIENT
  Age: 46 Year
  Sex: Female

DRUGS (16)
  1. ENBREL [Suspect]
     Indication: ANKYLOSING SPONDYLITIS
     Dosage: 50 mg, qwk
     Route: 058
  2. CYMBALTA [Concomitant]
     Dosage: 20 mg, UNK
     Route: 048
  3. TOPAMAX [Concomitant]
     Dosage: 25 mg, UNK
     Route: 048
  4. METHOTREXATE [Concomitant]
     Dosage: 2.5 mg, UNK
     Route: 048
  5. DILAUDID [Concomitant]
     Dosage: 2 mg, UNK
     Route: 048
  6. LOVASTATIN [Concomitant]
     Dosage: 10 mg, UNK
     Route: 048
  7. METFORMIN [Concomitant]
     Dosage: 500 mg, UNK
     Route: 048
  8. LISINOPRIL [Concomitant]
     Dosage: 10 mg, UNK
     Route: 048
  9. HYDROCHLOROTH [Concomitant]
     Dosage: 12.5 mg, UNK
     Route: 048
  10. PRILOSEC                           /00661201/ [Concomitant]
     Dosage: 10 mg, UNK
     Route: 048
  11. ALPRAZOLAM [Concomitant]
     Dosage: 2 mg, UNK
     Route: 048
  12. IBUPROFEN [Concomitant]
     Dosage: 200 mg, UNK
     Route: 048
  13. OXYCODONE [Concomitant]
     Dosage: 5 mg, UNK
     Route: 048
  14. FOLIC ACID [Concomitant]
     Route: 048
  15. OPANA [Concomitant]
     Dosage: 5 mg, UNK
     Route: 048
  16. VITAMIN D /00107901/ [Concomitant]
     Route: 048

REACTIONS (1)
  - Injection site reaction [Unknown]
